FAERS Safety Report 8340781-8 (Version None)
Quarter: 2012Q2

REPORT INFORMATION
  Report Type: 
  Country: None (occurrence: None)
  Receive Date: 20120507
  Receipt Date: 20120427
  Transmission Date: 20120825
  Serious: Yes (Hospitalization)
  Sender: FDA-Public Use
  Company Number: DE-ROCHE-1065538

PATIENT
  Sex: Female
  Weight: 67 kg

DRUGS (5)
  1. AVASTIN [Suspect]
     Indication: COLON CANCER METASTATIC
     Route: 042
     Dates: start: 20100927
  2. FLUOROURACIL [Concomitant]
     Indication: COLON CANCER METASTATIC
     Route: 042
     Dates: start: 20100927, end: 20100928
  3. FLUOROURACIL [Concomitant]
     Route: 042
     Dates: start: 20100927, end: 20100928
  4. IRINOTECAN HCL [Suspect]
     Indication: COLON CANCER METASTATIC
     Route: 042
     Dates: start: 20100927
  5. FOLINIC ACID [Concomitant]
     Indication: COLON CANCER METASTATIC
     Route: 042
     Dates: start: 20100927, end: 20100928

REACTIONS (2)
  - ABDOMINAL PAIN UPPER [None]
  - FAECALOMA [None]
